FAERS Safety Report 6043184-4 (Version None)
Quarter: 2009Q1

REPORT INFORMATION
  Report Type: 
  Country: None (occurrence: None)
  Receive Date: 20090119
  Receipt Date: 20090115
  Transmission Date: 20090719
  Serious: Yes (Other)
  Sender: FDA-Public Use
  Company Number: US-ABBOTT-09P-163-0498148-00

PATIENT
  Age: 28 Year
  Sex: Female

DRUGS (3)
  1. DEPAKOTE [Suspect]
     Indication: DRUG USE FOR UNKNOWN INDICATION
  2. ZYRTEC [Concomitant]
     Indication: DRUG USE FOR UNKNOWN INDICATION
  3. ANTIBIOTIC [Concomitant]
     Indication: DRUG USE FOR UNKNOWN INDICATION

REACTIONS (4)
  - ABORTION SPONTANEOUS [None]
  - BLIGHTED OVUM [None]
  - DRUG EXPOSURE DURING PREGNANCY [None]
  - MALAISE [None]
